FAERS Safety Report 8609055-1 (Version None)
Quarter: 2012Q3

REPORT INFORMATION
  Report Type: 
  Country: None (occurrence: None)
  Receive Date: 20120821
  Receipt Date: 19940121
  Transmission Date: 20120928
  Serious: Yes (Death, Other)
  Sender: FDA-Public Use
  Company Number: US-ROCHE-1100515

PATIENT
  Sex: Male

DRUGS (2)
  1. ACTIVASE [Suspect]
     Indication: MYOCARDIAL INFARCTION
  2. LIDOCAINE [Concomitant]

REACTIONS (7)
  - CARDIAC ARREST [None]
  - CARDIOGENIC SHOCK [None]
  - NO THERAPEUTIC RESPONSE [None]
  - VENTRICULAR TACHYCARDIA [None]
  - HYPOTENSION [None]
  - VENTRICULAR FIBRILLATION [None]
  - HYPOXIA [None]
